FAERS Safety Report 10067956 (Version 1)
Quarter: 2014Q2

REPORT INFORMATION
  Report Type: Spontaneous
  Country: FR (occurrence: FR)
  Receive Date: 20140409
  Receipt Date: 20140409
  Transmission Date: 20141212
  Serious: Yes (Hospitalization, Other)
  Sender: FDA-Public Use
  Company Number: FR-ASTRAZENECA-2014SE23407

PATIENT
  Age: 2998 Week
  Sex: Female

DRUGS (6)
  1. BRILIQUE [Suspect]
     Route: 048
     Dates: start: 201306
  2. KARDEGIC [Suspect]
     Route: 048
     Dates: start: 201306
  3. TAHOR [Concomitant]
     Dates: start: 201306
  4. AMLOR [Concomitant]
     Dates: start: 201306
  5. LEVOTHYROX [Concomitant]
     Dates: start: 201306
  6. SECTRAL [Concomitant]
     Dates: start: 201306

REACTIONS (2)
  - Face injury [Unknown]
  - Epistaxis [Recovered/Resolved]
